FAERS Safety Report 16458219 (Version 2)
Quarter: 2019Q3

REPORT INFORMATION
  Report Type: Spontaneous
  Country: US (occurrence: US)
  Receive Date: 20190620
  Receipt Date: 20190808
  Transmission Date: 20191004
  Serious: Yes (Other)
  Sender: FDA-Public Use
  Company Number: US-BAUSCH-BL-2019-017131

PATIENT
  Age: 67 Year
  Sex: Male
  Weight: 102.15 kg

DRUGS (9)
  1. ASPIRIN. [Concomitant]
     Active Substance: ASPIRIN
     Indication: PRODUCT USED FOR UNKNOWN INDICATION
     Route: 048
  2. LORTAB [Concomitant]
     Active Substance: ACETAMINOPHEN\HYDROCODONE BITARTRATE
     Indication: PRODUCT USED FOR UNKNOWN INDICATION
     Route: 048
  3. VITAMIN B12 [Concomitant]
     Active Substance: CYANOCOBALAMIN
     Indication: PRODUCT USED FOR UNKNOWN INDICATION
     Route: 048
  4. NIFEDIPINE EXTENDED RELEASE TABLETS [Suspect]
     Active Substance: NIFEDIPINE
     Dosage: TOOK AN EXTRA NIFEDIPINE TABLET LAST NIGHT
     Route: 048
     Dates: start: 201906
  5. TELMISARTAN. [Concomitant]
     Active Substance: TELMISARTAN
     Indication: PRODUCT USED FOR UNKNOWN INDICATION
     Route: 048
  6. TRAMADOL. [Concomitant]
     Active Substance: TRAMADOL
     Indication: PRODUCT USED FOR UNKNOWN INDICATION
     Route: 048
  7. NIFEDIPINE EXTENDED RELEASE TABLETS [Suspect]
     Active Substance: NIFEDIPINE
     Indication: HYPERTENSION
     Dosage: FOR THE PAST 10 YEARS
     Route: 048
     Dates: start: 2009
  8. FUROSEMIDE. [Concomitant]
     Active Substance: FUROSEMIDE
     Indication: PRODUCT USED FOR UNKNOWN INDICATION
     Route: 048
  9. FISH OIL [Concomitant]
     Active Substance: FISH OIL
     Indication: PRODUCT USED FOR UNKNOWN INDICATION
     Route: 048

REACTIONS (5)
  - Product size issue [Unknown]
  - Blood pressure increased [Recovering/Resolving]
  - Head discomfort [Not Recovered/Not Resolved]
  - Blood pressure diastolic decreased [Recovered/Resolved]
  - Product quality issue [Unknown]

NARRATIVE: CASE EVENT DATE: 2019
